FAERS Safety Report 15806509 (Version 3)
Quarter: 2019Q2

REPORT INFORMATION
  Report Type: Spontaneous
  Country: US (occurrence: US)
  Receive Date: 20190110
  Receipt Date: 20190418
  Transmission Date: 20190711
  Serious: Yes (Hospitalization, Other)
  Sender: FDA-Public Use
  Company Number: US-AMGEN-USASP2019000351

PATIENT
  Age: 62 Year
  Sex: Female
  Weight: 65.31 kg

DRUGS (2)
  1. PROLIA [Suspect]
     Active Substance: DENOSUMAB
     Indication: OSTEOPOROSIS POSTMENOPAUSAL
     Dosage: 60 MILLIGRAM, Q6MO
     Route: 058
     Dates: start: 20181108
  2. VALIUM [Concomitant]
     Active Substance: DIAZEPAM
     Dosage: UNK

REACTIONS (9)
  - Alopecia [Unknown]
  - Mammoplasty [Unknown]
  - Myalgia [Unknown]
  - Acne [Unknown]
  - Dermatitis [Unknown]
  - Arthralgia [Unknown]
  - Muscle spasms [Unknown]
  - Kidney infection [Unknown]
  - Stoma site pruritus [Unknown]

NARRATIVE: CASE EVENT DATE: 2018
